FAERS Safety Report 24091408 (Version 2)
Quarter: 2024Q3

REPORT INFORMATION
  Report Type: Report from Study
  Country: IT (occurrence: IT)
  Receive Date: 20240715
  Receipt Date: 20240716
  Transmission Date: 20241016
  Serious: Yes (Death)
  Sender: KARYOPHARM THERAPEUTICS
  Company Number: IT-KARYOPHARM-2024KPT001311

PATIENT
  Age: 52 Year
  Sex: Female
  Weight: 62 kg

DRUGS (10)
  1. SELINEXOR [Suspect]
     Active Substance: SELINEXOR
     Indication: Plasma cell myeloma
     Dosage: 80 MG, QOD
     Route: 048
     Dates: start: 20240614
  2. NADROPARIN CALCIUM [Concomitant]
     Active Substance: NADROPARIN CALCIUM
     Dosage: UNK, QD 3800 MU, QD
  3. LANSOPRAZOLE [Concomitant]
     Active Substance: LANSOPRAZOLE
     Dosage: 30 MG, QD
  4. ROCALTROL [Concomitant]
     Active Substance: CALCITRIOL
     Dosage: 0.25 UG, QD
  5. DYDETROGYL [Concomitant]
     Dosage: 30 GTT DROPS, WEEKLY
  6. ACYCLOVIR [Concomitant]
     Active Substance: ACYCLOVIR
     Dosage: 400 MG, BID
  7. ATOVAQUONE [Concomitant]
     Active Substance: ATOVAQUONE
     Dosage: 5 MG, QD
  8. LEVOTHYROXINE SODIUM [Concomitant]
     Active Substance: LEVOTHYROXINE SODIUM
     Dosage: 50 UG, QD
  9. SERTRALINE HYDROCHLORIDE [Concomitant]
     Active Substance: SERTRALINE HYDROCHLORIDE
     Dosage: 75 MG, QD
  10. FENTANYL [Concomitant]
     Active Substance: FENTANYL\FENTANYL CITRATE
     Dosage: 125 UG, Q72H

REACTIONS (1)
  - Death [Fatal]

NARRATIVE: CASE EVENT DATE: 20240710
